FAERS Safety Report 18254023 (Version 2)
Quarter: 2020Q4

REPORT INFORMATION
  Report Type: Report from Study
  Country: US (occurrence: US)
  Receive Date: 20200910
  Receipt Date: 20201014
  Transmission Date: 20210113
  Serious: Yes (Hospitalization)
  Sender: FDA-Public Use
  Company Number: US-JNJFOC-A-NJ2020-206483

PATIENT
  Age: 72 Year
  Sex: Female
  Weight: 81.63 kg

DRUGS (3)
  1. SILDENAFIL CITRATE. [Concomitant]
     Active Substance: SILDENAFIL CITRATE
  2. WARFARIN [Concomitant]
     Active Substance: WARFARIN
  3. OPSUMIT [Suspect]
     Active Substance: MACITENTAN
     Indication: PULMONARY ARTERIAL HYPERTENSION
     Dosage: 10 MG, QD
     Route: 048
     Dates: start: 20200609

REACTIONS (7)
  - Haematochezia [Recovering/Resolving]
  - Cardiomegaly [Unknown]
  - Rectal haemorrhage [Recovering/Resolving]
  - Hospitalisation [Unknown]
  - Gastrointestinal haemorrhage [Unknown]
  - Clostridium difficile colitis [Unknown]
  - Diarrhoea [Not Recovered/Not Resolved]

NARRATIVE: CASE EVENT DATE: 20200612
